FAERS Safety Report 26113009 (Version 2)
Quarter: 2025Q4

REPORT INFORMATION
  Report Type: Spontaneous
  Country: US (occurrence: US)
  Receive Date: 20251202
  Receipt Date: 20251221
  Transmission Date: 20260118
  Serious: No
  Sender: SANOFI AVENTIS
  Company Number: US-SA-2025SA360049

PATIENT
  Age: 60 Year
  Sex: Female

DRUGS (5)
  1. DUPIXENT [Suspect]
     Active Substance: DUPILUMAB
     Indication: Dermatitis atopic
     Dosage: 300 MG, QOW
     Route: 058
     Dates: start: 20250808
  2. BETAMETHASONE DIHYDROGEN PHOSPHATE [Concomitant]
     Active Substance: BETAMETHASONE DIHYDROGEN PHOSPHATE
     Dosage: UNK
  3. ACETAMINOPHEN\HYDROCODONE [Concomitant]
     Active Substance: ACETAMINOPHEN\HYDROCODONE
     Dosage: UNK
  4. OMNIPAQUE [Concomitant]
     Active Substance: IOHEXOL
     Dosage: UNK
  5. RINVOQ [Concomitant]
     Active Substance: UPADACITINIB

REACTIONS (6)
  - Infection [Recovering/Resolving]
  - Vomiting [Recovering/Resolving]
  - Nausea [Recovering/Resolving]
  - Abdominal pain upper [Recovering/Resolving]
  - Headache [Recovering/Resolving]
  - Diarrhoea [Recovering/Resolving]

NARRATIVE: CASE EVENT DATE: 20250101
